FAERS Safety Report 20908843 (Version 2)
Quarter: 2022Q4

REPORT INFORMATION
  Report Type: Spontaneous
  Country: US (occurrence: US)
  Receive Date: 20220603
  Receipt Date: 20221016
  Transmission Date: 20230112
  Serious: Yes (Other)
  Sender: FDA-Public Use
  Company Number: US-BEH-2022145977

PATIENT
  Age: 13 Year
  Sex: Male

DRUGS (12)
  1. IDELVION [Suspect]
     Active Substance: COAGULATION FACTOR IX RECOMBINANT HUMAN
     Indication: Factor IX deficiency
     Dosage: 2500 INTERNATIONAL UNIT, QW
     Route: 042
     Dates: start: 202204
  2. IDELVION [Suspect]
     Active Substance: COAGULATION FACTOR IX RECOMBINANT HUMAN
     Indication: Factor IX deficiency
     Dosage: 2500 INTERNATIONAL UNIT, QW
     Route: 042
     Dates: start: 202204
  3. IDELVION [Suspect]
     Active Substance: COAGULATION FACTOR IX RECOMBINANT HUMAN
     Indication: Prophylaxis
     Dosage: 2500 INTERNATIONAL UNIT, PRN
     Route: 042
     Dates: start: 202204
  4. IDELVION [Suspect]
     Active Substance: COAGULATION FACTOR IX RECOMBINANT HUMAN
     Indication: Prophylaxis
     Dosage: 2500 INTERNATIONAL UNIT, PRN
     Route: 042
     Dates: start: 202204
  5. IDELVION [Suspect]
     Active Substance: COAGULATION FACTOR IX RECOMBINANT HUMAN
     Dosage: UNK
     Route: 065
     Dates: start: 20220517
  6. IDELVION [Suspect]
     Active Substance: COAGULATION FACTOR IX RECOMBINANT HUMAN
     Dosage: UNK
     Route: 065
     Dates: start: 20220517
  7. IDELVION [Suspect]
     Active Substance: COAGULATION FACTOR IX RECOMBINANT HUMAN
     Dosage: 2019 INTERNATIONAL UNIT, QW
     Route: 042
     Dates: start: 20220413
  8. IDELVION [Suspect]
     Active Substance: COAGULATION FACTOR IX RECOMBINANT HUMAN
     Dosage: 2019 INTERNATIONAL UNIT, QW
     Route: 042
     Dates: start: 20220413
  9. IDELVION [Suspect]
     Active Substance: COAGULATION FACTOR IX RECOMBINANT HUMAN
     Dosage: 282 INTERNATIONAL UNIT, QW
     Route: 042
     Dates: start: 20220413
  10. IDELVION [Suspect]
     Active Substance: COAGULATION FACTOR IX RECOMBINANT HUMAN
     Dosage: 282 INTERNATIONAL UNIT, QW
     Route: 042
     Dates: start: 20220413
  11. IDELVION [Suspect]
     Active Substance: COAGULATION FACTOR IX RECOMBINANT HUMAN
     Dosage: UNK
     Route: 065
     Dates: start: 20220930
  12. IDELVION [Suspect]
     Active Substance: COAGULATION FACTOR IX RECOMBINANT HUMAN
     Dosage: UNK
     Route: 065
     Dates: start: 20220930

REACTIONS (7)
  - Fall [Unknown]
  - Head injury [Unknown]
  - Fall [Unknown]
  - Head injury [Unknown]
  - Back injury [Unknown]
  - Haemorrhage [Recovered/Resolved]
  - Soft tissue haemorrhage [Recovered/Resolved]

NARRATIVE: CASE EVENT DATE: 20220517
